FAERS Safety Report 9371608 (Version 1)
Quarter: 2013Q2

REPORT INFORMATION
  Report Type: Report from Study
  Country: GB (occurrence: GB)
  Receive Date: 20130627
  Receipt Date: 20130627
  Transmission Date: 20140414
  Serious: Yes (Hospitalization)
  Sender: FDA-Public Use
  Company Number: PHFR2013GB003588

PATIENT
  Age: 22 Year
  Sex: Male

DRUGS (1)
  1. TOBI PODHALER [Suspect]

REACTIONS (1)
  - Malaise [Unknown]
